FAERS Safety Report 6001192-3 (Version None)
Quarter: 2008Q4

REPORT INFORMATION
  Report Type: 
  Country: None (occurrence: None)
  Receive Date: 20081215
  Receipt Date: 20081202
  Transmission Date: 20090506
  Serious: Yes (Death)
  Sender: FDA-Public Use
  Company Number: US-ELI_LILLY_AND_COMPANY-US200812000872

PATIENT
  Age: 42 Year
  Sex: Male

DRUGS (6)
  1. CYMBALTA [Suspect]
     Indication: BIPOLAR I DISORDER
     Dosage: 30 MG, UNK
     Dates: start: 20080701, end: 20080801
  2. CYMBALTA [Suspect]
     Dosage: 30 MG, UNK
     Dates: start: 20081118
  3. OXYCONTIN [Concomitant]
     Indication: ACCIDENT AT WORK
  4. CHOLESTEROL [Concomitant]
  5. SEROQUEL [Concomitant]
     Dosage: 200 MG, EACH EVENING
     Dates: start: 20081118
  6. XANAX [Concomitant]
     Dosage: 1 MG, 2/D
     Dates: start: 20081118

REACTIONS (1)
  - DEATH [None]
